FAERS Safety Report 6295912-0 (Version None)
Quarter: 2009Q3

REPORT INFORMATION
  Report Type: 
  Country: None (occurrence: None)
  Receive Date: 20090804
  Receipt Date: 20090724
  Transmission Date: 20100115
  Serious: Yes (Other)
  Sender: FDA-Public Use
  Company Number: PHEH2009US08213

PATIENT
  Sex: Male

DRUGS (6)
  1. EXELON [Suspect]
     Dosage: 4.6 MG/24 HOURS
     Route: 062
  2. EXELON [Suspect]
     Dosage: 9.5 MG/24 HOURS
     Route: 062
  3. EXELON [Suspect]
     Dosage: 4.6 MG/24 HOURS
     Route: 062
  4. SEROQUEL [Concomitant]
  5. DRUG THERAPY NOS [Concomitant]
  6. QUETIAPINE FUMARATE [Concomitant]

REACTIONS (3)
  - DIARRHOEA [None]
  - LETHARGY [None]
  - PNEUMONIA [None]
